FAERS Safety Report 25758455 (Version 10)
Quarter: 2025Q4

REPORT INFORMATION
  Report Type: Spontaneous
  Country: US (occurrence: US)
  Receive Date: 20250904
  Receipt Date: 20251206
  Transmission Date: 20260118
  Serious: Yes (Hospitalization, Other)
  Sender: UNITED THERAPEUTICS
  Company Number: US-UNITED THERAPEUTICS-UNT-2025-029944

PATIENT
  Sex: Female
  Weight: 81.179 kg

DRUGS (28)
  1. REMODULIN [Suspect]
     Active Substance: TREPROSTINIL
     Indication: Pulmonary arterial hypertension
     Dosage: 0.026 ?G/KG (SELF-FILL WITH 2.3 ML PER CASSETTE; RATE 25 MCL PER HOUR), CONTINUING
  2. REMODULIN [Suspect]
     Active Substance: TREPROSTINIL
     Dosage: 0.036 ?G/KG (SELF-FILL WITH 2.9 ML PER CASSETTE; RATE 34 MCL PER HOUR), CONTINUING
  3. REMODULIN [Suspect]
     Active Substance: TREPROSTINIL
     Dosage: UNK (MICROLITERS/HR), CONTINUING
  4. REMODULIN [Suspect]
     Active Substance: TREPROSTINIL
     Dosage: UNK [0.046], CONTINUING
  5. REMODULIN [Suspect]
     Active Substance: TREPROSTINIL
     Dosage: UNK [0.040], CONTINUING [DECREASED DOSE]
  6. REMODULIN [Suspect]
     Active Substance: TREPROSTINIL
     Dosage: 0.040 ?G/KG (SELF-FILL WITH 3 ML PER CASSETTE; RATE 38 MCL PER HOUR), CONTINUING
  7. REMODULIN [Suspect]
     Active Substance: TREPROSTINIL
     Dosage: UNK, CONTINUING
  8. LECITHIN\POLOXAMER 407 [Suspect]
     Active Substance: LECITHIN\POLOXAMER 407
     Indication: Infusion site pain
     Dosage: UNK
  9. GABAPENTIN [Concomitant]
     Active Substance: GABAPENTIN
     Indication: Product used for unknown indication
     Dosage: UNK
  10. SODIUM CHLORIDE [Concomitant]
     Active Substance: SODIUM CHLORIDE
     Indication: Product used for unknown indication
     Dosage: UNK
  11. KETAMINE HYDROCHLORIDE [Concomitant]
     Active Substance: KETAMINE HYDROCHLORIDE
     Indication: Product used for unknown indication
     Dosage: UNK
  12. LECITHIN [Concomitant]
     Active Substance: LECITHIN
     Indication: Product used for unknown indication
     Dosage: UNK
  13. SILDENAFIL [Concomitant]
     Active Substance: SILDENAFIL
     Indication: Product used for unknown indication
     Dosage: UNK
  14. CLONIDINE [Concomitant]
     Active Substance: CLONIDINE
     Indication: Product used for unknown indication
     Dosage: UNK
  15. OXYGEN [Concomitant]
     Active Substance: OXYGEN
     Indication: Product used for unknown indication
  16. KETOPROFEN [Concomitant]
     Active Substance: KETOPROFEN
     Indication: Product used for unknown indication
     Dosage: UNK
  17. ASPIRIN [Concomitant]
     Active Substance: ASPIRIN
     Indication: Product used for unknown indication
     Dosage: UNK
  18. PROMETHAZINE HYDROCHLORIDE [Concomitant]
     Active Substance: PROMETHAZINE HYDROCHLORIDE
     Indication: Product used for unknown indication
     Dosage: UNK
  19. LIDOCAINE HYDROCHLORIDE [Concomitant]
     Active Substance: LIDOCAINE HYDROCHLORIDE
     Indication: Product used for unknown indication
     Dosage: UNK
  20. AMITRIPTYLINE HYDROCHLORIDE [Concomitant]
     Active Substance: AMITRIPTYLINE HYDROCHLORIDE
     Indication: Product used for unknown indication
     Dosage: UNK
  21. POLOXAMER [Concomitant]
     Active Substance: POLOXAMER
     Indication: Product used for unknown indication
     Dosage: UNK
  22. AMBRISENTAN [Concomitant]
     Active Substance: AMBRISENTAN
     Indication: Product used for unknown indication
     Dosage: UNK
  23. ONDANSETRON HYDROCHLORIDE [Concomitant]
     Active Substance: ONDANSETRON HYDROCHLORIDE
     Indication: Product used for unknown indication
     Dosage: UNK
  24. LIPITOR [Concomitant]
     Active Substance: ATORVASTATIN CALCIUM
     Indication: Product used for unknown indication
  25. METHOCARBAMOL [Concomitant]
     Active Substance: METHOCARBAMOL
     Indication: Product used for unknown indication
  26. POTASSIUM [Concomitant]
     Active Substance: POTASSIUM
     Indication: Product used for unknown indication
  27. TORSEMIDE [Concomitant]
     Active Substance: TORSEMIDE
     Indication: Product used for unknown indication
     Dosage: UNK
  28. ZINC [Concomitant]
     Active Substance: ZINC
     Indication: Product used for unknown indication
     Dosage: UNK

REACTIONS (30)
  - Splenic rupture [Recovered/Resolved]
  - Splenic haemorrhage [Recovered/Resolved]
  - Pain in extremity [Not Recovered/Not Resolved]
  - Pain [Not Recovered/Not Resolved]
  - Dyspnoea [Not Recovered/Not Resolved]
  - Neuropathy peripheral [Not Recovered/Not Resolved]
  - Angina pectoris [Recovered/Resolved]
  - Appendicitis [Recovered/Resolved]
  - Headache [Recovered/Resolved]
  - Infusion site pain [Recovered/Resolved]
  - Gait disturbance [Recovered/Resolved]
  - Hypoaesthesia [Recovered/Resolved]
  - Nausea [Recovered/Resolved]
  - Pain [Not Recovered/Not Resolved]
  - Infusion site induration [Recovered/Resolved]
  - Infusion site erythema [Recovered/Resolved]
  - Infusion site warmth [Recovered/Resolved]
  - Infusion site swelling [Recovered/Resolved]
  - Fatigue [Recovered/Resolved]
  - Migraine [Not Recovered/Not Resolved]
  - Influenza like illness [Not Recovered/Not Resolved]
  - Product adhesion issue [Unknown]
  - Device dislocation [Unknown]
  - Device physical property issue [Unknown]
  - Device connection issue [Unknown]
  - Product quality issue [Unknown]
  - Device wireless communication issue [Recovered/Resolved]
  - Device wireless communication issue [Recovered/Resolved]
  - Device wireless communication issue [Recovered/Resolved]
  - Device wireless communication issue [Recovered/Resolved]

NARRATIVE: CASE EVENT DATE: 20250101
